FAERS Safety Report 9246492 (Version 1)
Quarter: 2013Q2

REPORT INFORMATION
  Report Type: Spontaneous
  Country: NL (occurrence: NL)
  Receive Date: 20130422
  Receipt Date: 20130422
  Transmission Date: 20140414
  Serious: Yes (Other)
  Sender: FDA-Public Use
  Company Number: NL-PFIZER INC-2013121973

PATIENT
  Sex: Female

DRUGS (1)
  1. ATORVASTATIN PFIZER [Suspect]
     Dosage: UNK

REACTIONS (2)
  - Hydrocephalus [Unknown]
  - Face oedema [Unknown]
